FAERS Safety Report 21350196 (Version 2)
Quarter: 2022Q3

REPORT INFORMATION
  Report Type: Report from Study
  Country: US (occurrence: US)
  Receive Date: 20220919
  Receipt Date: 20220919
  Transmission Date: 20221027
  Serious: Yes (Death, Other)
  Sender: FDA-Public Use
  Company Number: US-PFIZER INC-202200581887

PATIENT
  Age: 40 Year
  Sex: Male

DRUGS (3)
  1. BRAFTOVI [Suspect]
     Active Substance: ENCORAFENIB
     Indication: Colon cancer
     Dosage: 375 MG, DAILY (TAKE 5 CAP DAILY)
     Route: 048
     Dates: start: 20211208
  2. BRAFTOVI [Suspect]
     Active Substance: ENCORAFENIB
     Dosage: 375 MG, DAILY (TAKE 5 CAPSULES BY MOUTH DAILY)
     Route: 048
     Dates: start: 20211203
  3. MEKTOVI [Suspect]
     Active Substance: BINIMETINIB
     Indication: Colon cancer
     Dosage: 45 MG, 2X/DAY (TAKE 3 TABLETS EVERY 12 HOURS)
     Route: 048
     Dates: start: 20211203

REACTIONS (4)
  - Death [Fatal]
  - Product dose omission issue [Unknown]
  - Off label use [Unknown]
  - Product use issue [Unknown]

NARRATIVE: CASE EVENT DATE: 20211208
